FAERS Safety Report 6237869-4 (Version None)
Quarter: 2009Q2

REPORT INFORMATION
  Report Type: 
  Country: None (occurrence: None)
  Receive Date: 20090620
  Receipt Date: 20090616
  Transmission Date: 20091009
  Serious: Yes (Other)
  Sender: FDA-Public Use
  Company Number: IL-SANOFI-SYNTHELABO-A01200906339

PATIENT
  Age: 45 Year
  Sex: Male

DRUGS (2)
  1. OXALIPLATIN [Suspect]
     Indication: COLORECTAL CANCER METASTATIC
     Dosage: UNK
  2. CAPECITABINE [Suspect]
     Indication: COLORECTAL CANCER METASTATIC
     Dosage: 1675 MG/MG IN 2 DIVIDED DOSES DAYS 1-14 EVERY 3 WEEKS
     Route: 048

REACTIONS (1)
  - HYPERTRIGLYCERIDAEMIA [None]
